FAERS Safety Report 15430119 (Version 2)
Quarter: 2018Q4

REPORT INFORMATION
  Report Type: Report from Study
  Country: US (occurrence: US)
  Receive Date: 20180926
  Receipt Date: 20181006
  Transmission Date: 20190204
  Serious: Yes (Other)
  Sender: FDA-Public Use
  Company Number: US-TEVA-2018-US-957365

PATIENT
  Age: 28 Year

DRUGS (9)
  1. CYCLOPHOSPHAMIDE. [Suspect]
     Active Substance: CYCLOPHOSPHAMIDE
     Indication: HODGKIN^S DISEASE RECURRENT
     Dosage: PART OF ADJUVANT CHEMOTHERAPY
     Route: 065
  2. BUSULFAN. [Suspect]
     Active Substance: BUSULFAN
     Indication: HODGKIN^S DISEASE RECURRENT
     Dosage: PART OF ADJUVANT CHEMOTHERAPY
     Route: 065
  3. DACARBAZINE. [Suspect]
     Active Substance: DACARBAZINE
     Indication: HODGKIN^S DISEASE RECURRENT
     Dosage: PART OF ABVD CHEMOTHERAPY
     Route: 065
  4. ETOPOSIDE. [Suspect]
     Active Substance: ETOPOSIDE
     Indication: HODGKIN^S DISEASE RECURRENT
     Dosage: PART OF ICE (ADJUVANT) CHEMOTHERAPY
     Route: 065
  5. CARBOPLATIN. [Suspect]
     Active Substance: CARBOPLATIN
     Indication: HODGKIN^S DISEASE RECURRENT
     Dosage: PART OF ICE (ADJUVANT) CHEMOTHERAPY
     Route: 065
  6. VINBLASTINE [Suspect]
     Active Substance: VINBLASTINE
     Indication: HODGKIN^S DISEASE RECURRENT
     Dosage: PART OF ABVD CHEMOTHERAPY
     Route: 065
  7. IFOSFAMIDE. [Suspect]
     Active Substance: IFOSFAMIDE
     Indication: HODGKIN^S DISEASE RECURRENT
     Dosage: PART OF ICE (ADJUVANT) CHEMOTHERAPY
     Route: 065
  8. DOXORUBICIN [Suspect]
     Active Substance: DOXORUBICIN
     Indication: HODGKIN^S DISEASE RECURRENT
     Dosage: PART OF ABVD CHEMOTHERAPY
     Route: 065
  9. BLEOMYCIN [Suspect]
     Active Substance: BLEOMYCIN SULFATE
     Indication: HODGKIN^S DISEASE RECURRENT
     Dosage: PART OF ABVD CHEMOTHERAPY
     Route: 065

REACTIONS (1)
  - Myelitis [Unknown]
